FAERS Safety Report 5273959-0 (Version None)
Quarter: 2007Q1

REPORT INFORMATION
  Report Type: 
  Country: None (occurrence: None)
  Receive Date: 20070323
  Receipt Date: 20070319
  Transmission Date: 20070707
  Serious: Yes (Death)
  Sender: FDA-Public Use
  Company Number: CA-GLAXOSMITHKLINE-A0570762A

PATIENT
  Age: 25 Year
  Sex: Male
  Weight: 75 kg

DRUGS (8)
  1. ADVAIR DISKUS 100/50 [Suspect]
     Indication: ASTHMA
     Dosage: 1PUFF TWICE PER DAY
     Route: 055
     Dates: start: 20030922
  2. SEREVENT [Suspect]
     Indication: ASTHMA
     Dosage: 2PUFF TWICE PER DAY
     Route: 055
     Dates: start: 19970101, end: 20030930
  3. FLOVENT [Suspect]
     Indication: ASTHMA
     Dosage: 2PUFF TWICE PER DAY
     Route: 055
     Dates: start: 19970101, end: 20030930
  4. VENTOLIN HFA [Concomitant]
     Route: 055
  5. PREDNISONE [Concomitant]
     Dates: start: 20030801
  6. PERCOCET [Concomitant]
     Dates: start: 20030101
  7. NEURONTIN [Concomitant]
     Dates: start: 20030827
  8. OXYCONTIN [Concomitant]
     Dates: start: 20030827

REACTIONS (5)
  - ASTHMA [None]
  - CARDIO-RESPIRATORY ARREST [None]
  - DEPRESSED LEVEL OF CONSCIOUSNESS [None]
  - FOREIGN BODY ASPIRATION [None]
  - HYPOREFLEXIA [None]
